FAERS Safety Report 10807573 (Version 1)
Quarter: 2015Q1

REPORT INFORMATION
  Report Type: Report from Study
  Country: US (occurrence: US)
  Receive Date: 20150217
  Receipt Date: 20150217
  Transmission Date: 20150721
  Serious: No
  Sender: FDA-Public Use
  Company Number: US-ABBVIE-14K-163-1261479-00

PATIENT
  Age: 45 Year
  Sex: Female

DRUGS (2)
  1. METOPROLOL [Concomitant]
     Active Substance: METOPROLOL
     Indication: HYPERTENSION
  2. HUMIRA [Suspect]
     Active Substance: ADALIMUMAB
     Indication: ANKYLOSING SPONDYLITIS
     Dates: start: 2012

REACTIONS (3)
  - Poor quality drug administered [Unknown]
  - Musculoskeletal stiffness [Not Recovered/Not Resolved]
  - Incorrect product storage [Unknown]

NARRATIVE: CASE EVENT DATE: 20140627
